FAERS Safety Report 7764156-5 (Version None)
Quarter: 2011Q3

REPORT INFORMATION
  Report Type: 
  Country: None (occurrence: None)
  Receive Date: 20110921
  Receipt Date: 20110919
  Transmission Date: 20111222
  Serious: Yes (Other)
  Sender: FDA-Public Use
  Company Number: US-BAYER-2011-087758

PATIENT
  Sex: Male

DRUGS (1)
  1. BETASERON [Suspect]
     Dosage: UNK
     Dates: end: 20110101

REACTIONS (4)
  - LIVER FUNCTION TEST ABNORMAL [None]
  - SYNCOPE [None]
  - VITAMIN B12 DECREASED [None]
  - OCULAR ICTERUS [None]
